FAERS Safety Report 14505904 (Version 2)
Quarter: 2019Q1

REPORT INFORMATION
  Report Type: Spontaneous
  Country: US (occurrence: US)
  Receive Date: 20180208
  Receipt Date: 20190221
  Transmission Date: 20190417
  Serious: No
  Sender: FDA-Public Use
  Company Number: US-HQ SPECIALTY-US-2017INT000250

PATIENT
  Sex: Female

DRUGS (1)
  1. TAXOL [Suspect]
     Active Substance: PACLITAXEL
     Indication: CHEMOTHERAPY
     Dosage: UNK
     Route: 042

REACTIONS (4)
  - Anorectal disorder [Unknown]
  - Depression [Unknown]
  - Laboratory test abnormal [Unknown]
  - Fatigue [Not Recovered/Not Resolved]
